FAERS Safety Report 7208452-9 (Version None)
Quarter: 2010Q4

REPORT INFORMATION
  Report Type: 
  Country: None (occurrence: None)
  Receive Date: 20101222
  Receipt Date: 20101206
  Transmission Date: 20110411
  Serious: Yes (Other)
  Sender: FDA-Public Use
  Company Number: ALA_01220_2010

PATIENT
  Sex: Male

DRUGS (7)
  1. REGLAN [Suspect]
     Indication: GASTROOESOPHAGEAL REFLUX DISEASE
     Dosage: (10MG TWICE DAILY 30 MINUTES BEFORE MEALS ORAL)
     Route: 048
     Dates: start: 20000301, end: 20090701
  2. RANITIDINE [Concomitant]
  3. LISINOPRIL [Concomitant]
  4. ZOLOFT [Concomitant]
  5. BU5PAR [Concomitant]
  6. LAMISIL [Concomitant]
  7. VIOXX [Concomitant]

REACTIONS (5)
  - ACCIDENT AT WORK [None]
  - BACK PAIN [None]
  - LIMB INJURY [None]
  - MUSCULOSKELETAL STIFFNESS [None]
  - TARDIVE DYSKINESIA [None]
